FAERS Safety Report 5719465-8 (Version None)
Quarter: 2008Q2

REPORT INFORMATION
  Report Type: 
  Country: None (occurrence: None)
  Receive Date: 20080428
  Receipt Date: 20080422
  Transmission Date: 20081010
  Serious: Yes (Hospitalization)
  Sender: FDA-Public Use
  Company Number: US-BRISTOL-MYERS SQUIBB COMPANY-14160725

PATIENT
  Age: 58 Year
  Sex: Male
  Weight: 77 kg

DRUGS (3)
  1. CETUXIMAB [Suspect]
     Indication: NEOPLASM MALIGNANT
     Dosage: START DATE = 13FEB08;860MG +6 WEEKLY OF 538 EACH
     Route: 042
     Dates: start: 20080331, end: 20080331
  2. CISPLATIN [Suspect]
     Indication: NEOPLASM MALIGNANT
     Dosage: 1 CYCLE 2 COURSES OF 200MG-18FEB08 AND 10MAR08. START DATE OF FIRST COURSE = 13FEB08
     Route: 042
     Dates: start: 20080310, end: 20080310
  3. RADIATION THERAPY [Suspect]
     Indication: NEOPLASM MALIGNANT
     Dosage: 35 DOSAGEFORM = 70 GY;ELASPSED DAYS- 38
     Dates: start: 20080327, end: 20080327

REACTIONS (8)
  - DERMATITIS ACNEIFORM [None]
  - DRUG HYPERSENSITIVITY [None]
  - FUNGAL INFECTION [None]
  - PAIN [None]
  - PRURITUS [None]
  - RADIATION SKIN INJURY [None]
  - SKIN EXFOLIATION [None]
  - STOMATITIS [None]
